FAERS Safety Report 4662302-3 (Version None)
Quarter: 2005Q2

REPORT INFORMATION
  Report Type: 
  Country: None (occurrence: None)
  Receive Date: 20050516
  Receipt Date: 20050509
  Transmission Date: 20051028
  Serious: Yes (Other)
  Sender: FDA-Public Use
  Company Number: US-BRISTOL-MYERS SQUIBB COMPANY-12966164

PATIENT
  Age: 41 Year
  Sex: Male

DRUGS (7)
  1. STAVUDINE [Suspect]
     Indication: HIV INFECTION
  2. DIDANOSINE [Suspect]
     Indication: HIV INFECTION
  3. NELFINAVIR [Suspect]
     Indication: HIV INFECTION
  4. GLYBURIDE [Suspect]
  5. PENTAMIDINE [Suspect]
  6. DAPSONE [Suspect]
  7. AZITHROMYCIN [Suspect]

REACTIONS (2)
  - RASH MACULO-PAPULAR [None]
  - URTICARIA GENERALISED [None]
